FAERS Safety Report 9710306 (Version 1)
Quarter: 2013Q4

REPORT INFORMATION
  Report Type: Spontaneous
  Country: US (occurrence: US)
  Receive Date: 20131126
  Receipt Date: 20131126
  Transmission Date: 20140711
  Serious: No
  Sender: FDA-Public Use
  Company Number: US-BRISTOL-MYERS SQUIBB COMPANY-18777201

PATIENT
  Age: 60 Year
  Sex: Female

DRUGS (2)
  1. BYETTA [Suspect]
     Dosage: 5MCG FOR 5 OR 6 MONTHS THEN TITRATED TO THE 10MCG
     Dates: start: 2012, end: 201303
  2. METFORMIN HCL [Suspect]

REACTIONS (1)
  - Blood glucose decreased [Recovered/Resolved]
